FAERS Safety Report 11368380 (Version 1)
Quarter: 2015Q3

REPORT INFORMATION
  Report Type: Spontaneous
  Country: US (occurrence: US)
  Receive Date: 20150811
  Receipt Date: 20150811
  Transmission Date: 20151125
  Serious: No
  Sender: FDA-Public Use
  Company Number: US-ELI_LILLY_AND_COMPANY-US201406000369

PATIENT
  Sex: Female

DRUGS (1)
  1. AXIRON [Suspect]
     Active Substance: TESTOSTERONE
     Indication: BLOOD TESTOSTERONE DECREASED
     Dosage: UNK, ONE PUMP DAILY
     Dates: start: 20140330

REACTIONS (5)
  - Wrong patient received medication [Unknown]
  - Influenza [Unknown]
  - Menorrhagia [Unknown]
  - Menopause [Unknown]
  - Accidental exposure to product [Unknown]
